FAERS Safety Report 18053030 (Version 3)
Quarter: 2020Q4

REPORT INFORMATION
  Report Type: Spontaneous
  Country: JP (occurrence: JP)
  Receive Date: 20200721
  Receipt Date: 20201014
  Transmission Date: 20210113
  Serious: Yes (Hospitalization, Other)
  Sender: FDA-Public Use
  Company Number: JP-TAKEDA-2020TJP014710

PATIENT
  Age: 68 Year
  Sex: Female
  Weight: 50.7 kg

DRUGS (8)
  1. MICAMLO [Concomitant]
     Active Substance: AMLODIPINE BESYLATE\TELMISARTAN
     Dosage: 1 DOSAGE FORM, QD
     Route: 048
     Dates: start: 20200612
  2. INISYNC COMBINATION TABLETS [Suspect]
     Active Substance: ALOGLIPTIN BENZOATE\METFORMIN HYDROCHLORIDE
     Indication: TYPE 2 DIABETES MELLITUS
     Dosage: 1 DOSAGE FORM, QD
     Route: 048
     Dates: start: 20200422, end: 20200526
  3. RYZODEG 70/30 [Concomitant]
     Active Substance: INSULIN ASPART\INSULIN DEGLUDEC
     Dosage: 14 INTERNATIONAL UNIT
     Route: 058
     Dates: start: 20171021, end: 20200526
  4. RYZODEG 70/30 [Concomitant]
     Active Substance: INSULIN ASPART\INSULIN DEGLUDEC
     Dosage: 14 INTERNATIONAL UNIT
     Route: 058
     Dates: start: 20200610
  5. LIVALO [Concomitant]
     Active Substance: PITAVASTATIN CALCIUM
     Dosage: 0.5 DOSAGE FORM, QD
     Route: 048
     Dates: start: 20150725, end: 20200526
  6. LIVALO [Concomitant]
     Active Substance: PITAVASTATIN CALCIUM
     Dosage: 0.5 DOSAGE FORM, QD
     Route: 048
     Dates: start: 20200908
  7. AMLODIPINE BESILATE [Concomitant]
     Active Substance: AMLODIPINE BESYLATE
     Dosage: 5 MILLIGRAM, QD
     Route: 048
     Dates: end: 20200526
  8. MICAMLO [Concomitant]
     Active Substance: AMLODIPINE BESYLATE\TELMISARTAN
     Dosage: 1 DOSAGE FORM, QD
     Route: 048
     Dates: end: 20200526

REACTIONS (2)
  - Mechanical ileus [Recovered/Resolved]
  - Off label use [Unknown]

NARRATIVE: CASE EVENT DATE: 20200421
